FAERS Safety Report 7642252-0 (Version None)
Quarter: 2011Q3

REPORT INFORMATION
  Report Type: 
  Country: None (occurrence: None)
  Receive Date: 20110728
  Receipt Date: 20110725
  Transmission Date: 20111222
  Serious: Yes (Death, Hospitalization)
  Sender: FDA-Public Use
  Company Number: PHHY2010NL73758

PATIENT
  Sex: Male

DRUGS (2)
  1. ZOMETA [Suspect]
     Dosage: 4 MG/5 ML, UNK
     Route: 042
     Dates: start: 20101029
  2. ZOMETA [Suspect]
     Dosage: 4 MG/5 ML, UNK
     Route: 042

REACTIONS (2)
  - CHEST DISCOMFORT [None]
  - DEATH [None]
